FAERS Safety Report 12158328 (Version 1)
Quarter: 2016Q1

REPORT INFORMATION
  Report Type: Spontaneous
  Country: US (occurrence: US)
  Receive Date: 20160308
  Receipt Date: 20160308
  Transmission Date: 20160526
  Serious: No
  Sender: FDA-Public Use
  Company Number: US-JNJFOC-20140506762

PATIENT
  Sex: Female

DRUGS (4)
  1. IMBRUVICA [Suspect]
     Active Substance: IBRUTINIB
     Indication: CHRONIC LYMPHOCYTIC LEUKAEMIA
     Route: 048
     Dates: start: 20140401
  2. SYNTHROID [Concomitant]
     Active Substance: LEVOTHYROXINE SODIUM
     Indication: THYROID DISORDER
     Route: 048
  3. ATIVAN [Concomitant]
     Active Substance: LORAZEPAM
     Indication: DEPRESSION
     Dosage: 1-2 MG AS NEEDED
     Route: 048
  4. ATIVAN [Concomitant]
     Active Substance: LORAZEPAM
     Indication: ANXIETY
     Dosage: 1-2 MG AS NEEDED
     Route: 048

REACTIONS (12)
  - Fatigue [Recovered/Resolved]
  - White blood cell count increased [Recovered/Resolved]
  - Anaemia [Unknown]
  - Infection [Not Recovered/Not Resolved]
  - Rash [Recovering/Resolving]
  - Sinusitis [Recovered/Resolved]
  - Gastrooesophageal reflux disease [Recovering/Resolving]
  - Onychoclasis [Recovered/Resolved]
  - Contusion [Recovering/Resolving]
  - Diarrhoea [Unknown]
  - Palpitations [Recovered/Resolved]
  - Weight increased [Not Recovered/Not Resolved]

NARRATIVE: CASE EVENT DATE: 2014
